FAERS Safety Report 12491836 (Version 1)
Quarter: 2016Q2

REPORT INFORMATION
  Report Type: Spontaneous
  Country: JP (occurrence: JP)
  Receive Date: 20160623
  Receipt Date: 20160623
  Transmission Date: 20160815
  Serious: Yes (Hospitalization, Other)
  Sender: FDA-Public Use
  Company Number: JP-SCIEGEN PHARMACEUTICALS INC-2016SCILIT00161

PATIENT
  Age: 67 Year
  Sex: Male

DRUGS (1)
  1. CLOPIDOGREL [Suspect]
     Active Substance: CLOPIDOGREL BISULFATE
     Indication: CEREBRAL INFARCTION
     Dosage: 75 MG, QD
     Route: 065

REACTIONS (19)
  - Ocular icterus [Unknown]
  - Cardiomegaly [Unknown]
  - Chromaturia [Unknown]
  - Thrombotic microangiopathy [Recovered/Resolved]
  - Nausea [Unknown]
  - Haematuria [Unknown]
  - Decreased appetite [Unknown]
  - Fatigue [Unknown]
  - Condition aggravated [Unknown]
  - Bilirubinuria [Unknown]
  - Thrombocytopenia [Recovering/Resolving]
  - Oedema [Unknown]
  - Renal failure [Unknown]
  - Oliguria [Recovering/Resolving]
  - Purpura [Unknown]
  - Haemolytic anaemia [Recovering/Resolving]
  - Proteinuria [Unknown]
  - Pleural effusion [Unknown]
  - Ascites [Unknown]
